FAERS Safety Report 7915849 (Version 2)
Quarter: 2013Q1

REPORT INFORMATION
  Report Type: Spontaneous
  Country: US (occurrence: US)
  Receive Date: 20110427
  Receipt Date: 20130116
  Transmission Date: 20140127
  Serious: Yes (Hospitalization)
  Sender: FDA-Public Use
  Company Number: US-US-EMD SERONO, INC.-7054806

PATIENT
  Sex: Male

DRUGS (3)
  1. REBIF [Suspect]
     Indication: MULTIPLE SCLEROSIS
     Route: 058
     Dates: start: 20080725
  2. AMPYRA [Suspect]
     Indication: PRODUCT USED FOR UNKNOWN INDICATION
     Dates: start: 2011, end: 2012
  3. HIGH BLOOD PRESSURE MEDICATION [Concomitant]
     Indication: HYPERTENSION

REACTIONS (1)
  - Grand mal convulsion [Recovering/Resolving]
